FAERS Safety Report 5531801-4 (Version None)
Quarter: 2007Q4

REPORT INFORMATION
  Report Type: 
  Country: None (occurrence: None)
  Receive Date: 20071128
  Receipt Date: 20071128
  Transmission Date: 20080405
  Serious: Yes (Life-Threatening, Hospitalization)
  Sender: FDA-Public Use
  Company Number: None

PATIENT
  Age: 54 Year
  Sex: Female

DRUGS (5)
  1. SULFADIAZINE [Suspect]
     Dosage: 2 - 500 MG PILL 4 X'AS PER DAY FOR 6 WEEKS
  2. DARAPRINE [Concomitant]
  3. LEUCOVOR [Concomitant]
  4. SIMVASTATIN [Concomitant]
  5. LEVOTHROID [Concomitant]

REACTIONS (9)
  - BACK PAIN [None]
  - BLOOD TEST ABNORMAL [None]
  - FALL [None]
  - HEAD INJURY [None]
  - INFLUENZA [None]
  - PAIN [None]
  - PNEUMONIA [None]
  - RASH [None]
  - THORACIC VERTEBRAL FRACTURE [None]
